FAERS Safety Report 12158954 (Version 2)
Quarter: 2016Q2

REPORT INFORMATION
  Report Type: Spontaneous
  Country: US (occurrence: US)
  Receive Date: 20160308
  Receipt Date: 20160413
  Transmission Date: 20160815
  Serious: No
  Sender: FDA-Public Use
  Company Number: US-JNJFOC-20160221832

PATIENT
  Age: 84 Year
  Sex: Female
  Weight: 49.9 kg

DRUGS (2)
  1. TYLENOL 8 HR ARTHRITIS PAIN [Suspect]
     Active Substance: ACETAMINOPHEN
     Indication: ARTHRALGIA
     Dosage: ONCE IN MORNING AND AS NEEDED.
     Route: 048
  2. TYLENOL 8 HR ARTHRITIS PAIN [Suspect]
     Active Substance: ACETAMINOPHEN
     Indication: ARTHRALGIA
     Route: 048
     Dates: start: 20160222, end: 20160222

REACTIONS (2)
  - Abnormal dreams [Recovered/Resolved]
  - Terminal insomnia [Recovered/Resolved]

NARRATIVE: CASE EVENT DATE: 20160222
